FAERS Safety Report 8341344-0 (Version None)
Quarter: 2012Q2

REPORT INFORMATION
  Report Type: 
  Country: None (occurrence: None)
  Receive Date: 20120507
  Receipt Date: 20120427
  Transmission Date: 20120825
  Serious: Yes (Other)
  Sender: FDA-Public Use
  Company Number: US-CELGENEUS-163-C5013-12040715

PATIENT
  Sex: Male
  Weight: 78 kg

DRUGS (13)
  1. PREDNISONE [Suspect]
     Dosage: .1 MILLIGRAM/KILOGRAM
     Route: 065
     Dates: start: 20100825, end: 20100828
  2. THALIDOMIDE [Suspect]
     Dosage: 100 MILLIGRAM
     Route: 048
     Dates: start: 20100224, end: 20100406
  3. MELPHALAN HYDROCHLORIDE [Suspect]
     Dosage: .1 MILLIGRAM/KILOGRAM
     Route: 065
     Dates: start: 20100825, end: 20100828
  4. MILK OF MAGNESIA TAB [Concomitant]
     Indication: CONSTIPATION
     Dosage: 3-4 TABS
     Route: 048
     Dates: start: 20090520
  5. PREVACID [Concomitant]
     Dosage: 30 MILLIGRAM
     Route: 048
     Dates: start: 20060101
  6. LORTAB [Concomitant]
     Dosage: 7.5 MILLIGRAM
     Route: 048
     Dates: start: 20110225
  7. MELPHALAN HYDROCHLORIDE [Suspect]
     Indication: MULTIPLE MYELOMA
     Dosage: .2 MILLIGRAM/KILOGRAM
     Route: 065
     Dates: start: 20090506
  8. LIPITOR [Concomitant]
     Dosage: 20 MILLIGRAM
     Route: 048
     Dates: start: 20060101
  9. ASPIRIN [Concomitant]
     Indication: THROMBOSIS PROPHYLAXIS
     Dosage: 81 MILLIGRAM
     Route: 048
     Dates: start: 20060101
  10. IBUPROFEN (ADVIL) [Concomitant]
     Dosage: 200 MILLIGRAM
     Route: 048
     Dates: start: 20070326, end: 20101102
  11. PREDNISONE [Suspect]
     Indication: MULTIPLE MYELOMA
     Dosage: .2 MILLIGRAM/KILOGRAM
     Route: 065
     Dates: start: 20090506
  12. SENOKOT [Concomitant]
     Indication: CONSTIPATION
     Dosage: 2 TABLET
     Route: 048
     Dates: start: 20060101
  13. THALIDOMIDE [Suspect]
     Indication: MULTIPLE MYELOMA
     Dosage: 100 MILLIGRAM
     Route: 048
     Dates: start: 20090506

REACTIONS (1)
  - THYROID CANCER [None]
